FAERS Safety Report 15279784 (Version 1)
Quarter: 2018Q3

REPORT INFORMATION
  Report Type: Spontaneous
  Country: US (occurrence: US)
  Receive Date: 20180815
  Receipt Date: 20180815
  Transmission Date: 20181010
  Serious: Yes (Other)
  Sender: FDA-Public Use
  Company Number: US-IPSEN BIOPHARMACEUTICALS, INC.-2018-11715

PATIENT
  Age: 59 Year
  Sex: Male
  Weight: 86.18 kg

DRUGS (5)
  1. CREON [Concomitant]
     Active Substance: PANCRELIPASE AMYLASE\PANCRELIPASE LIPASE\PANCRELIPASE PROTEASE
  2. SOMATULINE [Suspect]
     Active Substance: LANREOTIDE ACETATE
     Indication: PANCREATIC CARCINOMA METASTATIC
  3. INSULIN [Concomitant]
     Active Substance: INSULIN NOS
  4. PRILOSEC [Concomitant]
     Active Substance: OMEPRAZOLE MAGNESIUM
  5. SOMATULINE [Suspect]
     Active Substance: LANREOTIDE ACETATE
     Indication: NEUROENDOCRINE TUMOUR
     Dosage: NOT REPORTED
     Route: 065
     Dates: start: 20180801

REACTIONS (5)
  - Abdominal distension [Recovering/Resolving]
  - Vomiting [Recovering/Resolving]
  - Nausea [Recovering/Resolving]
  - Abdominal pain lower [Recovering/Resolving]
  - Flatulence [Recovering/Resolving]

NARRATIVE: CASE EVENT DATE: 201808
